FAERS Safety Report 11774642 (Version 3)
Quarter: 2016Q2

REPORT INFORMATION
  Report Type: Spontaneous
  Country: US (occurrence: US)
  Receive Date: 20151124
  Receipt Date: 20160524
  Transmission Date: 20160815
  Serious: No
  Sender: FDA-Public Use
  Company Number: US-PURDUE-USA-2015-0126804

PATIENT
  Sex: Female

DRUGS (1)
  1. HYSINGLA ER [Suspect]
     Active Substance: HYDROCODONE BITARTRATE
     Indication: PAIN
     Dosage: 60 MG, Q24H
     Route: 048
     Dates: start: 20150511, end: 20150527

REACTIONS (3)
  - Rash [Recovered/Resolved]
  - Discomfort [Recovered/Resolved]
  - Drug effect increased [Recovered/Resolved]
